FAERS Safety Report 19322100 (Version 1)
Quarter: 2021Q2

REPORT INFORMATION
  Report Type: Spontaneous
  Country: JP (occurrence: JP)
  Receive Date: 20210528
  Receipt Date: 20210528
  Transmission Date: 20210717
  Serious: Yes (Other)
  Sender: FDA-Public Use
  Company Number: JP-LEO PHARMA-335927

PATIENT
  Age: 81 Year

DRUGS (1)
  1. DOVOBET [Suspect]
     Active Substance: BETAMETHASONE\CALCIPOTRIENE
     Indication: PSORIASIS
     Route: 065
     Dates: end: 20210331

REACTIONS (2)
  - Psoriasis [Recovered/Resolved]
  - Porokeratosis [Recovered/Resolved]
